FAERS Safety Report 19980937 (Version 1)
Quarter: 2021Q4

REPORT INFORMATION
  Report Type: Spontaneous
  Country: US (occurrence: US)
  Receive Date: 20211021
  Receipt Date: 20211021
  Transmission Date: 20220303
  Serious: Yes (Hospitalization)
  Sender: FDA-Public Use
  Company Number: US-AZURITY PHARMACEUTICALS, INC.-2021AZY00096

PATIENT
  Sex: Male

DRUGS (2)
  1. KATERZIA [Suspect]
     Active Substance: AMLODIPINE BENZOATE
     Dosage: UNK
  2. KATERZIA [Suspect]
     Active Substance: AMLODIPINE BENZOATE
     Dosage: UNK DOSE INCREASE

REACTIONS (1)
  - Hypertension [Unknown]
